FAERS Safety Report 5481929-2 (Version None)
Quarter: 2007Q4

REPORT INFORMATION
  Report Type: 
  Country: None (occurrence: None)
  Receive Date: 20071005
  Receipt Date: 20070920
  Transmission Date: 20080405
  Serious: Yes (Other)
  Sender: FDA-Public Use
  Company Number: T07-USA-05141-01

PATIENT
  Age: 66 Year
  Sex: Male
  Weight: 77.7012 kg

DRUGS (22)
  1. MEMANTINE HCL [Suspect]
     Indication: COGNITIVE DISORDER
     Dates: start: 20070615
  2. MEMANTINE HCL [Suspect]
     Indication: COGNITIVE DISORDER
     Dates: end: 20070815
  3. MEMANTINE HCL [Suspect]
     Indication: COGNITIVE DISORDER
     Dates: start: 20070825, end: 20070909
  4. SINEMET [Concomitant]
  5. ADVIL [Concomitant]
  6. ASPIRIN [Concomitant]
  7. PERI-COLACE [Concomitant]
  8. COENZYME Q10 [Concomitant]
  9. VITAMIN B-12 [Concomitant]
  10. VITAMIN B COMPLEX CAP [Concomitant]
  11. BRAHMI [Concomitant]
  12. TRIPHALA [Concomitant]
  13. AYURVEDIC FORMULA [Concomitant]
  14. VITAMIN E [Concomitant]
  15. COD LIVER OIL FORTIFIED TAB [Concomitant]
  16. AMRIT NECTAR [Concomitant]
  17. BLISSFUL JOY [Concomitant]
  18. MENTAL CLARITY [Concomitant]
  19. CALCIUM ABSORPTION [Concomitant]
  20. MIND FLEX [Concomitant]
  21. HERBAL DI-GEST [Concomitant]
  22. DIGEST TONE [Concomitant]

REACTIONS (13)
  - AKINESIA [None]
  - ANXIETY [None]
  - CONFUSIONAL STATE [None]
  - DYSPRAXIA [None]
  - EMOTIONAL DISTRESS [None]
  - HALLUCINATION, VISUAL [None]
  - INITIAL INSOMNIA [None]
  - INSOMNIA [None]
  - MIDDLE INSOMNIA [None]
  - PARANOIA [None]
  - PARKINSONISM [None]
  - PROSTATITIS [None]
  - SLEEP DISORDER [None]
